FAERS Safety Report 19267268 (Version 1)
Quarter: 2021Q2

REPORT INFORMATION
  Report Type: Other
  Country: CA (occurrence: CA)
  Receive Date: 20210518
  Receipt Date: 20210518
  Transmission Date: 20210717
  Serious: Yes (Other)
  Sender: FDA-Public Use
  Company Number: CA-CELLTRION INC.-2021CA006541

PATIENT

DRUGS (9)
  1. ATORVASTATIN [Concomitant]
     Active Substance: ATORVASTATIN
  2. ACTEMRA [Suspect]
     Active Substance: TOCILIZUMAB
     Indication: TRANSPLANT REJECTION
     Dosage: 600 MILLIGRAM, 1 EVERY 4 WEEKS
     Route: 042
  3. ADVAGRAF [Concomitant]
     Active Substance: TACROLIMUS
  4. PREDNISONE. [Concomitant]
     Active Substance: PREDNISONE
  5. AMLODIPINE [Concomitant]
     Active Substance: AMLODIPINE BESYLATE
  6. MAGNESIUM [Concomitant]
     Active Substance: MAGNESIUM
  7. SYNTHROID [Concomitant]
     Active Substance: LEVOTHYROXINE SODIUM
     Indication: HYPOTHYROIDISM
  8. CALCIUM CARBONATE/ERGOCALCIFEROL [Concomitant]
  9. RITUXIMAB (UNKNOWN) [Suspect]
     Active Substance: RITUXIMAB
     Indication: TRANSPLANT REJECTION
     Route: 065

REACTIONS (5)
  - IgA nephropathy [Unknown]
  - Blood pressure diastolic increased [Unknown]
  - Hypothyroidism [Unknown]
  - Off label use [Unknown]
  - Hypertension [Unknown]
